FAERS Safety Report 22161898 (Version 1)
Quarter: 2023Q1

REPORT INFORMATION
  Report Type: Report from Study
  Country: SE (occurrence: SE)
  Receive Date: 20230331
  Receipt Date: 20230331
  Transmission Date: 20230418
  Serious: Yes (Other)
  Sender: FDA-Public Use
  Company Number: SE-JNJFOC-20230367109

PATIENT

DRUGS (1)
  1. FIBRINOGEN HUMAN\THROMBIN HUMAN [Suspect]
     Active Substance: FIBRINOGEN HUMAN\THROMBIN HUMAN
     Indication: Wound closure
     Route: 065

REACTIONS (5)
  - Post procedural haematoma [Unknown]
  - Cerebrospinal fluid leakage [Unknown]
  - Muscular weakness [Unknown]
  - Neck pain [Unknown]
  - Drug ineffective [Unknown]
